FAERS Safety Report 12808968 (Version 2)
Quarter: 2016Q4

REPORT INFORMATION
  Report Type: Spontaneous
  Country: CZ (occurrence: CZ)
  Receive Date: 20161004
  Receipt Date: 20161014
  Transmission Date: 20170207
  Serious: Yes (Hospitalization, Other)
  Sender: FDA-Public Use
  Company Number: CZ-GILEAD-2016-0235102

PATIENT
  Age: 57 Year
  Sex: Female
  Weight: 75 kg

DRUGS (11)
  1. ZYDELIG [Suspect]
     Active Substance: IDELALISIB
     Dosage: 300 MG, QD
     Route: 065
     Dates: end: 20160914
  2. COTRIMOXAZOL [Concomitant]
     Active Substance: SULFAMETHOXAZOLE\TRIMETHOPRIM
  3. RITUXIMAB [Suspect]
     Active Substance: RITUXIMAB
     Indication: CHRONIC LYMPHOCYTIC LEUKAEMIA
     Dosage: UNK
     Route: 065
     Dates: start: 20160111, end: 20160914
  4. AMIKIN [Concomitant]
     Active Substance: AMIKACIN SULFATE
     Indication: BACTERIAL INFECTION
     Dosage: 1 G, QD
     Route: 042
     Dates: start: 20160831, end: 20160915
  5. MERONEM [Concomitant]
     Active Substance: MEROPENEM
     Indication: BACTERIAL INFECTION
     Dosage: 3 G, QD
     Route: 042
     Dates: start: 20160831, end: 20160915
  6. VASOCARDIN [Concomitant]
     Active Substance: METOPROLOL
     Dosage: 50 MG, QD
     Route: 048
  7. BLESSIN [Concomitant]
     Dosage: 80 MG, QD
     Route: 048
  8. ZYDELIG [Suspect]
     Active Substance: IDELALISIB
     Indication: CHRONIC LYMPHOCYTIC LEUKAEMIA
     Dosage: 150 MG, QD
     Route: 065
     Dates: start: 20151211
  9. ZOVIRAX [Concomitant]
     Active Substance: ACYCLOVIR
     Dosage: 400 MG, QD
     Route: 048
  10. URSOSAN [Concomitant]
     Dosage: UNK
     Route: 048
  11. HELICID                            /00661201/ [Concomitant]

REACTIONS (4)
  - Off label use [Recovered/Resolved]
  - Cytomegalovirus infection [Recovered/Resolved]
  - Drug ineffective [Not Recovered/Not Resolved]
  - Chronic lymphocytic leukaemia refractory [Not Recovered/Not Resolved]

NARRATIVE: CASE EVENT DATE: 20151211
